FAERS Safety Report 6150379-8 (Version None)
Quarter: 2009Q2

REPORT INFORMATION
  Report Type: 
  Country: None (occurrence: None)
  Receive Date: 20090409
  Receipt Date: 20090403
  Transmission Date: 20091009
  Serious: Yes (Hospitalization, Other)
  Sender: FDA-Public Use
  Company Number: IL-ROXANE LABORATORIES, INC.-2009-RO-00336RO

PATIENT
  Age: 23 Year
  Sex: Male

DRUGS (16)
  1. MORPHINE [Suspect]
     Indication: PAIN
     Route: 042
  2. MORPHINE [Suspect]
     Route: 030
  3. MORPHINE [Suspect]
     Dosage: 60MG
     Route: 048
  4. MORPHINE [Suspect]
     Dosage: 360MG
     Route: 048
  5. MORPHINE [Suspect]
     Dosage: 500MG
  6. MIDAZOLAM HCL [Suspect]
     Indication: SEDATION
  7. MEPERIDINE HCL [Suspect]
     Indication: PAIN
     Route: 030
  8. OXYCODONE HCL [Suspect]
     Indication: HYPERAESTHESIA
     Dosage: 60MG
     Route: 048
  9. CARBAMAZEPINE [Suspect]
     Indication: MOOD ALTERED
     Dosage: 800MG
  10. CARBAMAZEPINE [Suspect]
     Dosage: 600MG
     Route: 048
  11. AMITRIPTYLINE HCL [Suspect]
     Indication: HYPERAESTHESIA
     Dosage: 50MG
     Route: 048
  12. AMITRIPTYLINE HCL [Suspect]
     Indication: ELEVATED MOOD
     Dosage: 75MG
  13. OXYCONTIN [Suspect]
     Indication: PAIN
     Dosage: 160MG
  14. KETAMINE HCL [Concomitant]
     Indication: PAIN
  15. CLONAZEPAM [Concomitant]
     Indication: PAIN
     Dosage: 1.5MG
  16. CLONAZEPAM [Concomitant]
     Dosage: .5MG
     Route: 048

REACTIONS (8)
  - ABNORMAL BEHAVIOUR [None]
  - APNOEIC ATTACK [None]
  - BRADYPNOEA [None]
  - DEPRESSION [None]
  - DRUG DEPENDENCE [None]
  - DRUG INEFFECTIVE [None]
  - DRUG TOLERANCE [None]
  - HYPERAESTHESIA [None]
